FAERS Safety Report 10399730 (Version 1)
Quarter: 2014Q1

REPORT INFORMATION
  Report Type: Spontaneous
  Country: US (occurrence: None)
  Receive Date: 20130815
  Receipt Date: 20130815
  Transmission Date: 20141002
  Serious: Yes (Other)
  Sender: FDA-Public Use
  Company Number: ADR-2013-00308

PATIENT
  Sex: Male

DRUGS (1)
  1. BACLOFEN INTRATHECAL (GABLOFEN) 500 MCG/ML [Suspect]
     Indication: MUSCLE SPASTICITY

REACTIONS (8)
  - Concussion [None]
  - Confusional state [None]
  - Somnolence [None]
  - Fall [None]
  - Headache [None]
  - Fatigue [None]
  - Gait disturbance [None]
  - Unevaluable event [None]
